FAERS Safety Report 6849834-4 (Version None)
Quarter: 2010Q3

REPORT INFORMATION
  Report Type: 
  Country: None (occurrence: None)
  Receive Date: 20100716
  Receipt Date: 20071207
  Transmission Date: 20110219
  Serious: No
  Sender: FDA-Public Use
  Company Number: US-PFIZER INC-2007084227

PATIENT
  Sex: Female
  Weight: 103.6 kg

DRUGS (5)
  1. CHANTIX [Suspect]
     Indication: SMOKING CESSATION THERAPY
     Dates: start: 20070801
  2. PRAVACHOL [Concomitant]
  3. TOPAMAX [Concomitant]
  4. WARFARIN SODIUM [Concomitant]
  5. INSULIN [Concomitant]

REACTIONS (3)
  - ANXIETY [None]
  - BLOOD DISORDER [None]
  - WHITE BLOOD CELL COUNT INCREASED [None]
